FAERS Safety Report 8183697-2 (Version None)
Quarter: 2012Q1

REPORT INFORMATION
  Report Type: 
  Country: None (occurrence: None)
  Receive Date: 20120202
  Receipt Date: 20111123
  Transmission Date: 20120608
  Serious: Yes (Other)
  Sender: FDA-Public Use
  Company Number: KAD201111-000072

PATIENT
  Age: 64 Year
  Sex: Male
  Weight: 68.9467 kg

DRUGS (4)
  1. RIBAVIRIN [Suspect]
     Dosage: 1000 QD
  2. PEGASYS [Suspect]
     Dosage: 180 MCG
  3. VICTRELIS [Suspect]
     Dosage: 800 MG (FOUR 200 MG CAPSULES) TID, ORAL
     Route: 048
  4. MIRTAZAPINE [Concomitant]

REACTIONS (4)
  - ANAEMIA [None]
  - FATIGUE [None]
  - ASTHENIA [None]
  - RASH [None]
